FAERS Safety Report 5330661-4 (Version None)
Quarter: 2007Q2

REPORT INFORMATION
  Report Type: 
  Country: None (occurrence: None)
  Receive Date: 20070522
  Receipt Date: 20070516
  Transmission Date: 20071010
  Serious: Yes (Other)
  Sender: FDA-Public Use
  Company Number: HQWYE243916MAY07

PATIENT
  Age: 81 Year
  Sex: Female

DRUGS (5)
  1. AMIODARONE HCL [Suspect]
     Indication: ATRIAL FIBRILLATION
     Route: 042
     Dates: start: 20070411, end: 20070411
  2. TEICOPLANIN [Concomitant]
     Indication: CELLULITIS
     Dosage: 400 MG; FREQUENCY NOT SPECIFIED
     Route: 042
     Dates: start: 20070411, end: 20070413
  3. PREDNISOLONE [Concomitant]
     Indication: DRUG USE FOR UNKNOWN INDICATION
     Dosage: 10 MG; FREQUENCY NOT SPECIFIED
     Route: 048
     Dates: start: 20070411
  4. CLINDAMYCIN [Concomitant]
     Indication: CELLULITIS
     Dosage: 450 MG; FREQUENCY NOT SPECIFIED
     Route: 048
     Dates: start: 20070411, end: 20070418
  5. THYROXINE ^COX^ [Concomitant]
     Indication: HYPOTHYROIDISM
     Dosage: 100 MCG; FREQUENCY NOT SPECIFIED
     Route: 048

REACTIONS (5)
  - BLOOD PRESSURE DECREASED [None]
  - DYSPNOEA [None]
  - ERYTHEMA [None]
  - HEART RATE INCREASED [None]
  - HYPERHIDROSIS [None]
